FAERS Safety Report 7723678-3 (Version None)
Quarter: 2011Q3

REPORT INFORMATION
  Report Type: 
  Country: None (occurrence: None)
  Receive Date: 20110901
  Receipt Date: 20110819
  Transmission Date: 20111222
  Serious: No
  Sender: FDA-Public Use
  Company Number: CA-ELI_LILLY_AND_COMPANY-CA201108006095

PATIENT
  Sex: Male

DRUGS (12)
  1. TRAZODONE HYDROCHLORIDE [Concomitant]
  2. FLUOXETINE [Concomitant]
  3. TEMAZEPAM [Concomitant]
  4. RANITIDINE [Concomitant]
  5. SEROQUEL [Concomitant]
  6. THIAMINE [Concomitant]
  7. ZYPREXA [Suspect]
     Indication: SCHIZOPHRENIA
     Dosage: 30 MG, QD
  8. BENZTROPINE MESYLATE [Concomitant]
  9. ATIVAN [Concomitant]
  10. ZYPREXA [Suspect]
     Dosage: 10 MG, BID
  11. RISPERDAL [Concomitant]
  12. TRILAFON [Concomitant]

REACTIONS (7)
  - WHITE BLOOD CELL COUNT INCREASED [None]
  - LYMPHOCYTE COUNT INCREASED [None]
  - RECTAL ABSCESS [None]
  - ALANINE AMINOTRANSFERASE INCREASED [None]
  - OVERDOSE [None]
  - ASPARTATE AMINOTRANSFERASE INCREASED [None]
  - DIABETES MELLITUS [None]
